FAERS Safety Report 6922107-7 (Version None)
Quarter: 2010Q3

REPORT INFORMATION
  Report Type: 
  Country: None (occurrence: None)
  Receive Date: 20100812
  Receipt Date: 20100723
  Transmission Date: 20110219
  Serious: Yes (Hospitalization)
  Sender: FDA-Public Use
  Company Number: PHHY2010DE49517

PATIENT
  Age: 64 Year
  Sex: Male

DRUGS (7)
  1. PAMIDRONATE DISODIUM [Suspect]
     Indication: PROSTATE CANCER
     Dosage: UNK
  2. PHENPROCOUMON [Concomitant]
  3. ANESTHETICS [Concomitant]
  4. AMOXICILLIN [Concomitant]
     Dosage: 500 MG, UNK
  5. CLAVULANATE POTASSIUM [Concomitant]
     Dosage: 125 MG, TID
     Route: 048
  6. HEXETIDINE [Concomitant]
     Dosage: UNK, THREE TIMES A DAY
  7. IBUPROFEN [Concomitant]
     Indication: ANALGESIC THERAPY
     Dosage: 600 MG, TID

REACTIONS (5)
  - BONE DISORDER [None]
  - DENTAL OPERATION [None]
  - OSTEONECROSIS OF JAW [None]
  - OSTEOTOMY [None]
  - WOUND CLOSURE [None]
